FAERS Safety Report 5915850-X (Version None)
Quarter: 2008Q4

REPORT INFORMATION
  Report Type: 
  Country: None (occurrence: None)
  Receive Date: 20081010
  Receipt Date: 20080930
  Transmission Date: 20090506
  Serious: Yes (Other)
  Sender: FDA-Public Use
  Company Number: US-PFIZER INC-2008083078

PATIENT
  Sex: Female
  Weight: 90 kg

DRUGS (5)
  1. LYRICA [Suspect]
     Indication: FIBROMYALGIA
     Route: 048
     Dates: start: 20080912
  2. CLONIDINE [Concomitant]
  3. TENORMIN [Concomitant]
  4. FUROSEMIDE [Concomitant]
  5. CELEBREX [Concomitant]

REACTIONS (1)
  - EYE SWELLING [None]
